FAERS Safety Report 11887429 (Version 2)
Quarter: 2016Q1

REPORT INFORMATION
  Report Type: Report from Study
  Country: JP (occurrence: JP)
  Receive Date: 20160105
  Receipt Date: 20160111
  Transmission Date: 20160526
  Serious: Yes (Other)
  Sender: FDA-Public Use
  Company Number: JP-ROCHE-1688806

PATIENT

DRUGS (10)
  1. CARBOPLATIN. [Suspect]
     Active Substance: CARBOPLATIN
     Indication: LYMPHOMA
     Dosage: AUC=5, MAXIMUM DOSE 800MG, ON DAY 1
     Route: 065
  2. ETOPOSIDE. [Suspect]
     Active Substance: ETOPOSIDE
     Indication: LYMPHOMA
     Dosage: DAY 1 THROUGH TO 3
     Route: 065
  3. CISPLATIN. [Suspect]
     Active Substance: CISPLATIN
     Indication: LYMPHOMA
     Dosage: 100 MG/M2 OVER 24 HR ON DAY 1, FOR DHAP ARM PATIENTS, 25 MG/M2 DAY 1 TO 3, FOR GDP ARM PATIENTS.
     Route: 065
  4. DEXAMETHASONE. [Suspect]
     Active Substance: DEXAMETHASONE
     Indication: LYMPHOMA
     Dosage: 40 MG/BODY DAY 1 THOROUGH TO 4
     Route: 065
  5. IFOSFAMIDE. [Suspect]
     Active Substance: IFOSFAMIDE
     Dosage: ON DAY 3
     Route: 065
  6. CYTARABINE. [Suspect]
     Active Substance: CYTARABINE
     Indication: LYMPHOMA
     Dosage: PER 12 HR ON DAY 2
     Route: 065
  7. MESNA. [Suspect]
     Active Substance: MESNA
     Indication: LYMPHOMA
     Dosage: 20% DOSE OF IFOSFAMIDE DAY 1 THROUGH TO 3
     Route: 065
  8. GEMCITABINE [Suspect]
     Active Substance: GEMCITABINE\GEMCITABINE HYDROCHLORIDE
     Indication: LYMPHOMA
     Dosage: ON DAY 1 AND 8
     Route: 065
  9. RITUXIMAB [Suspect]
     Active Substance: RITUXIMAB
     Indication: LYMPHOMA
     Dosage: ON THE DAY 0 IF CD20 WAS POSITIVE
     Route: 042
  10. IFOSFAMIDE. [Suspect]
     Active Substance: IFOSFAMIDE
     Indication: LYMPHOMA
     Dosage: ON DAY 1 AND 2
     Route: 065

REACTIONS (4)
  - Anaemia [Unknown]
  - Neutropenia [Unknown]
  - Renal impairment [Unknown]
  - Thrombocytopenia [Unknown]
